FAERS Safety Report 15851316 (Version 1)
Quarter: 2019Q1

REPORT INFORMATION
  Report Type: Spontaneous
  Country: SE (occurrence: SE)
  Receive Date: 20190122
  Receipt Date: 20190122
  Transmission Date: 20190417
  Serious: Yes (Other)
  Sender: FDA-Public Use
  Company Number: SE-TEVA-2019-SE-1001827

PATIENT
  Age: 54 Year
  Sex: Female

DRUGS (3)
  1. BRUFEN RETARD 800 MG DEPOTTABLETTER [Suspect]
     Active Substance: IBUPROFEN
     Indication: SPONDYLOARTHROPATHY
     Dosage: 1600 MILLIGRAM DAILY; 800 MG, 2X/DAY
     Route: 048
     Dates: start: 20080924, end: 201503
  2. PREDNISOLONE. [Suspect]
     Active Substance: PREDNISOLONE
     Indication: SPONDYLOARTHROPATHY
     Dosage: 1 DOSAGE FORMS DAILY; DOSAGE 1-2 X 1
     Route: 048
     Dates: start: 20080702
  3. ENBREL [Suspect]
     Active Substance: ETANERCEPT
     Indication: SPONDYLOARTHROPATHY
     Dosage: 50 MG, WEEKLY
     Route: 058
     Dates: start: 20110112, end: 201503

REACTIONS (4)
  - Gastric neoplasm [Recovered/Resolved]
  - Dyspepsia [Recovered/Resolved]
  - Abdominal pain [Recovered/Resolved]
  - Nausea [Recovered/Resolved]

NARRATIVE: CASE EVENT DATE: 20140508
